FAERS Safety Report 20730424 (Version 1)
Quarter: 2022Q2

REPORT INFORMATION
  Report Type: Spontaneous
  Country: US (occurrence: None)
  Receive Date: 20220419
  Receipt Date: 20220419
  Transmission Date: 20220721
  Serious: Yes (Other)
  Sender: FDA-Public Use
  Company Number: None

PATIENT
  Age: 46 Year
  Sex: Male
  Weight: 90 kg

DRUGS (6)
  1. VUITY [Suspect]
     Active Substance: PILOCARPINE HYDROCHLORIDE
     Indication: Product used for unknown indication
     Dosage: OTHER QUANTITY : 1 DROP(S);?FREQUENCY : DAILY;?
     Route: 047
     Dates: start: 20220126, end: 20220303
  2. ADDERALL [Concomitant]
     Active Substance: AMPHETAMINE ASPARTATE\AMPHETAMINE SULFATE\DEXTROAMPHETAMINE SACCHARATE\DEXTROAMPHETAMINE SULFATE
  3. PROPECIA [Concomitant]
     Active Substance: FINASTERIDE
  4. PREGABALIN [Concomitant]
     Active Substance: PREGABALIN
  5. DIETARY SUPPLEMENT [Concomitant]
     Active Substance: DIETARY SUPPLEMENT
  6. BIOTIN [Concomitant]
     Active Substance: BIOTIN

REACTIONS (4)
  - Dry eye [None]
  - Photopsia [None]
  - Blindness [None]
  - Retinal detachment [None]

NARRATIVE: CASE EVENT DATE: 20220303
